FAERS Safety Report 10205717 (Version 2)
Quarter: 2014Q3

REPORT INFORMATION
  Report Type: Spontaneous
  Country: JP (occurrence: JP)
  Receive Date: 20140530
  Receipt Date: 20140812
  Transmission Date: 20150326
  Serious: Yes (Death)
  Sender: FDA-Public Use
  Company Number: JP-ROCHE-1407918

PATIENT
  Age: 8 Decade
  Sex: Male

DRUGS (1)
  1. XELODA [Suspect]
     Active Substance: CAPECITABINE
     Indication: COLON CANCER
     Route: 048
     Dates: start: 20140414, end: 20140509

REACTIONS (1)
  - Coronary artery disease [Fatal]

NARRATIVE: CASE EVENT DATE: 20140520
